FAERS Safety Report 24662403 (Version 1)
Quarter: 2024Q4

REPORT INFORMATION
  Report Type: Report from Study
  Country: US (occurrence: US)
  Receive Date: 20241125
  Receipt Date: 20241125
  Transmission Date: 20250114
  Serious: Yes (Other)
  Sender: ABBVIE
  Company Number: US-ABBVIE-5797635

PATIENT
  Age: 81 Year
  Sex: Female

DRUGS (2)
  1. HUMIRA [Suspect]
     Active Substance: ADALIMUMAB
     Indication: Rheumatoid arthritis
     Dosage: CITRATE FREE
     Route: 058
     Dates: start: 20231115
  2. HUMIRA [Suspect]
     Active Substance: ADALIMUMAB
     Dosage: CITRATE FREE
     Route: 058
     Dates: start: 20230101

REACTIONS (12)
  - Upper limb fracture [Not Recovered/Not Resolved]
  - Balance disorder [Unknown]
  - Limb injury [Not Recovered/Not Resolved]
  - Sinusitis [Unknown]
  - Ear infection [Unknown]
  - Labyrinthitis [Unknown]
  - Hypoacusis [Unknown]
  - Fall [Unknown]
  - Multiple fractures [Unknown]
  - Impaired healing [Unknown]
  - Limb operation [Unknown]
  - Fungal infection [Unknown]

NARRATIVE: CASE EVENT DATE: 20240101
